FAERS Safety Report 10010285 (Version 1)
Quarter: 2014Q1

REPORT INFORMATION
  Report Type: Spontaneous
  Country: US (occurrence: US)
  Receive Date: 20140314
  Receipt Date: 20140314
  Transmission Date: 20141002
  Serious: Yes (Other)
  Sender: FDA-Public Use
  Company Number: US-AMGEN-USASP2014016706

PATIENT
  Age: 77 Year
  Sex: Female

DRUGS (4)
  1. PROLIA [Suspect]
     Indication: OSTEOPOROSIS POSTMENOPAUSAL
     Dosage: UNK
     Route: 065
     Dates: start: 2013
  2. PHENERGAN                          /00033001/ [Concomitant]
     Indication: NAUSEA
  3. LORTAB                             /00607101/ [Concomitant]
     Indication: PAIN
  4. XANAX [Concomitant]
     Indication: ABDOMINAL DISCOMFORT

REACTIONS (21)
  - Impaired healing [Not Recovered/Not Resolved]
  - Cardiac flutter [Unknown]
  - Chest pain [Unknown]
  - Mobility decreased [Unknown]
  - Rash pruritic [Not Recovered/Not Resolved]
  - Dizziness [Unknown]
  - Pain [Unknown]
  - Rash erythematous [Not Recovered/Not Resolved]
  - Local swelling [Unknown]
  - Feeling hot [Unknown]
  - Nail disorder [Unknown]
  - Alopecia [Unknown]
  - Nausea [Unknown]
  - Vomiting [Unknown]
  - Abdominal distension [Unknown]
  - Gastric disorder [Unknown]
  - Weight decreased [Unknown]
  - Abdominal pain [Unknown]
  - Arthralgia [Unknown]
  - Pruritus [Not Recovered/Not Resolved]
  - Erythema [Unknown]
